FAERS Safety Report 9015938 (Version 1)
Quarter: 2013Q1

REPORT INFORMATION
  Report Type: Spontaneous
  Country: US (occurrence: US)
  Receive Date: 20130116
  Receipt Date: 20130116
  Transmission Date: 20140127
  Serious: Yes (Life-Threatening, Hospitalization)
  Sender: FDA-Public Use
  Company Number: US-009507513-1301XAA004181

PATIENT
  Age: 83 Year
  Sex: Female

DRUGS (11)
  1. SINGULAIR [Suspect]
     Dosage: 10 MG, QD
     Route: 048
  2. AMLODIPINE [Suspect]
     Indication: CHOLELITHIASIS
     Dosage: 5 MG, UNK
     Route: 048
  3. INTAL [Suspect]
     Indication: HYPERTENSION
     Route: 045
  4. CLARITIN [Suspect]
     Dosage: 10 MG, QD UNK
     Route: 048
  5. ASPIRIN [Suspect]
     Dosage: 100 MG, QD
     Route: 048
  6. THEOPHYLLINE [Suspect]
     Dosage: 200 MG, QD
     Route: 048
  7. MUCODYNE [Suspect]
     Indication: ARTHRALGIA
     Dosage: 1500 MG, QD
     Route: 048
  8. URSO [Suspect]
     Indication: ASTHMA
     Dosage: 200 MG, QD
     Route: 048
  9. MOHRUS [Suspect]
     Indication: CEREBRAL INFARCTION
     Dosage: UNK, QD
     Route: 061
  10. PULMICORT [Suspect]
     Indication: PRODUCT USED FOR UNKNOWN INDICATION
     Dosage: 200 MG, INHALATION
     Route: 055
  11. RENIVEZE [Suspect]
     Dosage: 5 MG, UNK
     Route: 048

REACTIONS (2)
  - Tubulointerstitial nephritis [Unknown]
  - Leukocytoclastic vasculitis [Unknown]
